FAERS Safety Report 6223377-3 (Version None)
Quarter: 2009Q2

REPORT INFORMATION
  Report Type: 
  Country: None (occurrence: None)
  Receive Date: 20090611
  Receipt Date: 20090529
  Transmission Date: 20091009
  Serious: Yes (Other)
  Sender: FDA-Public Use
  Company Number: US-ELI_LILLY_AND_COMPANY-US200906000464

PATIENT
  Sex: Female

DRUGS (10)
  1. FORTEO [Suspect]
     Dosage: UNK, UNK
     Dates: start: 20080101
  2. HYDROCODONE BITARTRATE [Concomitant]
  3. NEXIUM [Concomitant]
  4. CRESTOR [Concomitant]
     Dosage: 10 MG
  5. ASPIRIN [Concomitant]
     Dosage: UNK, UNK
  6. ZELNORM [Concomitant]
     Indication: GASTROINTESTINAL DISORDER
     Dosage: UNK, UNK
  7. LORAZEPAM [Concomitant]
     Dosage: 1 MG, UNK
  8. LIPITOR [Concomitant]
     Dosage: 10 MG, UNK
  9. NITROGLYCERIN [Concomitant]
  10. AMLODIPINE BESYLATE [Concomitant]
     Dosage: 25 MG, UNK

REACTIONS (4)
  - CARDIAC STRESS TEST ABNORMAL [None]
  - CATHETERISATION CARDIAC ABNORMAL [None]
  - CORONARY ARTERY OCCLUSION [None]
  - ELECTROCARDIOGRAM ABNORMAL [None]
